FAERS Safety Report 14415744 (Version 1)
Quarter: 2018Q1

REPORT INFORMATION
  Report Type: Report from Study
  Country: US (occurrence: US)
  Receive Date: 20180122
  Receipt Date: 20180122
  Transmission Date: 20180509
  Serious: No
  Sender: FDA-Public Use
  Company Number: US-ALEXION PHARMACEUTICALS INC.-A201800521

PATIENT
  Age: 50 Year
  Sex: Male

DRUGS (2)
  1. SOLIRIS [Suspect]
     Active Substance: ECULIZUMAB
     Dosage: 900 MG, EVERY 14 DAYS
     Route: 042
     Dates: start: 20090917
  2. SOLIRIS [Suspect]
     Active Substance: ECULIZUMAB
     Indication: PAROXYSMAL NOCTURNAL HAEMOGLOBINURIA
     Dosage: UNK
     Route: 065

REACTIONS (6)
  - Gastrointestinal infection [Unknown]
  - Chills [Unknown]
  - Feeling hot [Unknown]
  - Chromaturia [Unknown]
  - Influenza like illness [Unknown]
  - Flank pain [Unknown]

NARRATIVE: CASE EVENT DATE: 20180108
